FAERS Safety Report 7213232-4 (Version None)
Quarter: 2011Q1

REPORT INFORMATION
  Report Type: 
  Country: None (occurrence: None)
  Receive Date: 20110106
  Receipt Date: 20101231
  Transmission Date: 20110831
  Serious: Yes (Death)
  Sender: FDA-Public Use
  Company Number: US-CELGENEUS-163-21880-10120991

PATIENT
  Age: 79 Year
  Sex: Female

DRUGS (11)
  1. VELCADE [Suspect]
     Route: 065
     Dates: start: 20100201
  2. ZOFRAN [Concomitant]
     Route: 065
  3. COLACE [Concomitant]
     Route: 065
  4. VITAMIN D [Concomitant]
     Route: 065
  5. LEVOTHROID [Concomitant]
     Route: 065
  6. PLAVIX [Concomitant]
     Route: 065
  7. CALCITRIOL [Concomitant]
     Route: 065
  8. LACTULOSE [Concomitant]
     Route: 065
  9. REVLIMID [Suspect]
     Indication: MULTIPLE MYELOMA
     Route: 048
     Dates: start: 20091123, end: 20091221
  10. ATENOLOL [Concomitant]
     Route: 065
  11. MEGACE [Concomitant]
     Route: 065

REACTIONS (3)
  - RENAL FAILURE [None]
  - MULTIPLE MYELOMA [None]
  - LIGHT CHAIN DISEASE [None]
